FAERS Safety Report 6292946-7 (Version None)
Quarter: 2009Q3

REPORT INFORMATION
  Report Type: 
  Country: None (occurrence: None)
  Receive Date: 20090729
  Receipt Date: 20090720
  Transmission Date: 20100115
  Serious: Yes (Hospitalization)
  Sender: FDA-Public Use
  Company Number: ADR8002009

PATIENT
  Age: 70 Year
  Sex: Female

DRUGS (4)
  1. ALENDRONIC ACID (MFR: UNKNOWN) [Suspect]
     Indication: OSTEOPOROSIS
     Dosage: 70 MG WEEKLY ORAL USE
     Route: 048
     Dates: start: 20080214, end: 20081107
  2. CALCICHEW D3 [Concomitant]
  3. FOLIC ACID [Concomitant]
  4. SIMVASTATIN [Concomitant]

REACTIONS (3)
  - HAEMATEMESIS [None]
  - MELAENA [None]
  - OESOPHAGITIS [None]
